FAERS Safety Report 9383928 (Version 1)
Quarter: 2013Q3

REPORT INFORMATION
  Report Type: Spontaneous
  Country: SE (occurrence: SE)
  Receive Date: 20130705
  Receipt Date: 20130705
  Transmission Date: 20140515
  Serious: Yes (Life-Threatening)
  Sender: FDA-Public Use
  Company Number: SE-ROCHE-1244520

PATIENT
  Sex: Male

DRUGS (1)
  1. VISMODEGIB [Suspect]
     Indication: PINEALOBLASTOMA
     Route: 065

REACTIONS (1)
  - Neoplasm progression [Unknown]
